FAERS Safety Report 8173583-6 (Version None)
Quarter: 2012Q1

REPORT INFORMATION
  Report Type: 
  Country: None (occurrence: None)
  Receive Date: 20120224
  Receipt Date: 20120123
  Transmission Date: 20120608
  Serious: Yes (Hospitalization)
  Sender: FDA-Public Use
  Company Number: COL_10937_2012

PATIENT
  Age: 11 Year
  Sex: Male

DRUGS (3)
  1. COLGATE TOTAL? ADVANCED WHITENING GEL TOOTHPASTE [Suspect]
     Indication: GINGIVITIS
     Dosage: (ORAL)
     Route: 048
     Dates: start: 20110101, end: 20110109
  2. COLGATE TOTAL? ADVANCED WHITENING GEL TOOTHPASTE [Suspect]
     Indication: DENTAL CARIES
     Dosage: (ORAL)
     Route: 048
     Dates: start: 20110101, end: 20110109
  3. COLGATE TOTAL? ADVANCED WHITENING GEL TOOTHPASTE [Suspect]
     Indication: DENTAL PLAQUE
     Dosage: (ORAL)
     Route: 048
     Dates: start: 20110101, end: 20110109

REACTIONS (2)
  - NONSPECIFIC REACTION [None]
  - PHARYNGEAL OEDEMA [None]
